FAERS Safety Report 9462909 (Version 1)
Quarter: 2013Q3

REPORT INFORMATION
  Report Type: Spontaneous
  Country: RS (occurrence: None)
  Receive Date: 20130814
  Receipt Date: 20130814
  Transmission Date: 20140515
  Serious: Yes (Hospitalization)
  Sender: FDA-Public Use
  Company Number: FK201303198

PATIENT
  Age: 33 Year
  Sex: Female

DRUGS (5)
  1. METHYLPREDNISOLONE (MANUFACTURER UNKNOWN) (METHYLPREDNISOLONE SODIUM SUCCINATE) (METHYLPREDNISOLONE SODIUM SUCCINATE) [Suspect]
     Indication: SYSTEMIC LUPUS ERYTHEMATOSUS
     Route: 042
  2. CYCLOPHOSPHAMIDE [Suspect]
     Indication: SYSTEMIC LUPUS ERYTHEMATOSUS
     Route: 042
  3. GLUCOCORTICOSTEROIDS [Suspect]
     Indication: SYSTEMIC LUPUS ERYTHEMATOSUS
  4. PREDNISONE [Suspect]
     Indication: SYSTEMIC LUPUS ERYTHEMATOSUS
     Dosage: 1 MG/KG BODY WEIGHT
  5. AZATHIOPRINE [Suspect]
     Indication: SYSTEMIC LUPUS ERYTHEMATOSUS

REACTIONS (22)
  - Encephalitis [None]
  - Renal failure [None]
  - Anaemia [None]
  - Cushing^s syndrome [None]
  - Hypoalbuminaemia [None]
  - Glomerulonephritis [None]
  - Pleural effusion [None]
  - Hypertension [None]
  - Oedema peripheral [None]
  - Hepatosplenomegaly [None]
  - General physical health deterioration [None]
  - Pyrexia [None]
  - Headache [None]
  - Epilepsy [None]
  - Encephalomalacia [None]
  - Staphylococcus test positive [None]
  - Agranulocytosis [None]
  - Ileus [None]
  - Subcutaneous abscess [None]
  - Bronchitis [None]
  - Nausea [None]
  - Inflammatory marker increased [None]
